FAERS Safety Report 14417385 (Version 1)
Quarter: 2018Q1

REPORT INFORMATION
  Report Type: Spontaneous
  Country: US (occurrence: US)
  Receive Date: 20180122
  Receipt Date: 20180122
  Transmission Date: 20180509
  Serious: No
  Sender: FDA-Public Use
  Company Number: US-ALLERGAN-1708930US

PATIENT
  Sex: Female
  Weight: 82.1 kg

DRUGS (2)
  1. PREDNISOLONE ACETATE, 1.0% [Suspect]
     Active Substance: PREDNISOLONE ACETATE
     Indication: EYE SWELLING
     Dosage: 2 GTT, Q2HR FOR 24 HOURS
     Route: 047
     Dates: start: 20170210
  2. PREDNISOLONE ACETATE, 1.0% [Suspect]
     Active Substance: PREDNISOLONE ACETATE
     Indication: EYE INFECTION
     Dosage: 2 GTT, QID FOR 48 HOURS
     Route: 047

REACTIONS (1)
  - Drug ineffective [Unknown]
